FAERS Safety Report 4412359-X (Version None)
Quarter: 2004Q2

REPORT INFORMATION
  Report Type: 
  Country: None (occurrence: None)
  Receive Date: 20040630
  Receipt Date: 20040504
  Transmission Date: 20050107
  Serious: No
  Sender: FDA-Public Use
  Company Number: 04P-163-0259575-00

PATIENT
  Age: 77 Year
  Sex: Female
  Weight: 58.9676 kg

DRUGS (14)
  1. HUMIRA [Suspect]
     Indication: RHEUMATOID ARTHRITIS
     Dosage: 40 MG 1 IN 2 WK SUBCUTANEOUS
     Route: 058
     Dates: start: 20030701
  2. FOLIC ACID [Concomitant]
  3. OMEPRAZOLE [Concomitant]
  4. GLIMEPIRIDE [Concomitant]
  5. CELECOXIB [Concomitant]
  6. METHOTREXATE [Concomitant]
  7. RISEDRONATE SODIUM [Concomitant]
  8. METOPROLOL SUCCINATE [Concomitant]
  9. ASPIRIN [Concomitant]
  10. VICODIN [Concomitant]
  11. ACETAMINOPHEN [Concomitant]
  12. CLOPIDOGREL BISULFATE [Concomitant]
  13. ATORVASTATIN [Concomitant]
  14. MULTIVITAMIN [Concomitant]

REACTIONS (1)
  - MEDICATION ERROR [None]
